FAERS Safety Report 9185884 (Version 1)
Quarter: 2013Q1

REPORT INFORMATION
  Report Type: Spontaneous
  Country: US (occurrence: US)
  Receive Date: 20130325
  Receipt Date: 20130325
  Transmission Date: 20140127
  Serious: Yes (Hospitalization)
  Sender: FDA-Public Use
  Company Number: GXBR2013US000765

PATIENT
  Age: 71 None
  Sex: Female

DRUGS (21)
  1. ALPRAZOLAM TABLETS USP [Suspect]
     Indication: ANXIETY
     Dosage: 0.25MG QAM AND 0.75MG QPM
     Route: 048
  2. ALPRAZOLAM TABLETS USP [Suspect]
     Dosage: 5 X 0.5MG TOTAL DOSE
     Dates: start: 20121220, end: 20121220
  3. ALPRAZOLAM TABLETS USP [Suspect]
     Dosage: 0.5MG FROM 1-3 TIMES DAILY
     Dates: start: 20121211, end: 20121216
  4. ALPRAZOLAM TABLETS USP [Suspect]
     Dosage: 0.5MG - 0.75MG TOTAL DAILY DOSE
     Dates: start: 20121222, end: 20121227
  5. MUCINEX [Concomitant]
     Dosage: 600 MG, 1-2 TABS TWICE DAILY
  6. IPRATROPIUM BROMIDE AND ALBUTEROL SULFATE [Concomitant]
     Indication: WHEEZING
     Dosage: 1 VIAL Q4HRS PRN
  7. BUDESONIDE [Concomitant]
     Indication: ASTHMA
     Dosage: 1 VIAL, BID
  8. BROVANA [Concomitant]
     Indication: CHRONIC OBSTRUCTIVE PULMONARY DISEASE
     Dosage: 1 VIAL, BID
  9. L-THYROXINE [Concomitant]
     Indication: HYPOTHYROIDISM
     Dosage: 88 UG, QD
  10. AMLODIPINE BESYLATE [Concomitant]
     Indication: BLOOD PRESSURE
     Dosage: 5 MG, QD
  11. LOSARTAN [Concomitant]
     Indication: BLOOD PRESSURE
     Dosage: 25 MG, QD
  12. ATORVASTATIN [Concomitant]
     Indication: BLOOD CHOLESTEROL
     Dosage: 20 MG, QD
  13. NAPROXEN [Concomitant]
     Indication: ARTHRITIS
     Dosage: 500 MG, BID
  14. COMBIVENT [Concomitant]
     Indication: LUNG DISORDER
     Dosage: 1-2PUFFS 4 TIMES DAILY
  15. ADVAIR [Concomitant]
     Dosage: UNK DF, PRN
  16. FLUTICASONE [Concomitant]
     Indication: HYPERSENSITIVITY
     Dosage: 2 DF, QD
  17. FISH OIL [Concomitant]
     Indication: SUPPLEMENTATION THERAPY
     Dosage: 600 MG, QD
  18. CALCIUM [Concomitant]
     Dosage: UNK DF, UNK
  19. LORATADINE [Concomitant]
     Indication: HYPERSENSITIVITY
     Dosage: 10 MG, QD
  20. BIOTIN [Concomitant]
     Dosage: 500 UG, QD
  21. STEROIDS NOS [Concomitant]
     Indication: CHRONIC OBSTRUCTIVE PULMONARY DISEASE
     Dosage: UNK DF, UNK

REACTIONS (21)
  - Chronic obstructive pulmonary disease [Recovered/Resolved]
  - Acute respiratory failure [Recovered/Resolved]
  - Dyspnoea [Recovered/Resolved]
  - Oxygen saturation decreased [Recovered/Resolved]
  - Hyponatraemia [Recovered/Resolved]
  - Confusional state [Recovered/Resolved]
  - Transient ischaemic attack [Recovered/Resolved]
  - Aphasia [Recovered/Resolved]
  - Nausea [Recovered/Resolved]
  - Mydriasis [Recovered/Resolved]
  - Dysphagia [Recovered/Resolved]
  - Blood pressure increased [Recovered/Resolved]
  - Overdose [Recovered/Resolved]
  - Mouth breathing [Recovered/Resolved]
  - Unresponsive to stimuli [Recovered/Resolved]
  - Lethargy [Recovered/Resolved]
  - Delirium [Recovered/Resolved]
  - Pulmonary hypertension [Unknown]
  - Atelectasis [Unknown]
  - Diarrhoea [Recovered/Resolved]
  - Withdrawal syndrome [Recovered/Resolved]
